FAERS Safety Report 7763106 (Version 4)
Quarter: 2013Q2

REPORT INFORMATION
  Report Type: Spontaneous
  Country: US (occurrence: US)
  Receive Date: 20110118
  Receipt Date: 20130402
  Transmission Date: 20140414
  Serious: Yes (Life-Threatening, Hospitalization)
  Sender: FDA-Public Use
  Company Number: US-BAYER-2011-004867

PATIENT
  Age: 31 Year
  Sex: Female
  Weight: 81.63 kg

DRUGS (10)
  1. YASMIN [Suspect]
     Indication: CONTRACEPTION
     Dosage: UNK
     Dates: start: 2007, end: 2008
  2. YASMIN [Suspect]
     Indication: ACNE
  3. YASMIN [Suspect]
     Indication: MENSTRUATION IRREGULAR
  4. ALDACTONE [SPIRONOLACTONE] [Concomitant]
  5. NSAID^S [Concomitant]
     Dosage: UNK
     Dates: start: 1996
  6. ANTIBIOTICS [Concomitant]
     Dosage: UNK
     Dates: start: 2001, end: 2010
  7. LORATAB [Concomitant]
     Indication: ARTHRALGIA
     Dosage: ? OR 1 TABLET TWICE DAILY
     Dates: start: 2007, end: 200808
  8. IBUPROFEN [Concomitant]
     Indication: INFLAMMATION
     Dosage: 1 TABLET DAILY AS NEEDED
     Dates: start: 2007, end: 200808
  9. SPIRONOLACTONE [Concomitant]
  10. CLEOCIN [Concomitant]
     Dosage: 75 MG / 5 ML GRANULES 100 ML, SIGNIFICANT: 1 TEASPOON QHS
     Route: 048

REACTIONS (5)
  - Pulmonary embolism [None]
  - Pain [None]
  - Deep vein thrombosis [None]
  - Emotional distress [None]
  - General physical health deterioration [None]
